FAERS Safety Report 8104578 (Version 2)
Quarter: 2013Q2

REPORT INFORMATION
  Report Type: Report from Study
  Country: BR (occurrence: MX)
  Receive Date: 20110824
  Receipt Date: 20130619
  Transmission Date: 20140414
  Serious: Yes (Other)
  Sender: FDA-Public Use
  Company Number: PHHY2011MX72569

PATIENT
  Age: 70 Year
  Sex: Female

DRUGS (1)
  1. DIOVAN HCT [Suspect]
     Indication: HYPERTENSION
     Dosage: 1 DF (160/25 MG), DAILY
     Dates: start: 200809

REACTIONS (2)
  - Fall [Recovered/Resolved]
  - Foot fracture [Recovered/Resolved]
